FAERS Safety Report 20867452 (Version 3)
Quarter: 2022Q2

REPORT INFORMATION
  Report Type: Spontaneous
  Country: US (occurrence: None)
  Receive Date: 20220524
  Receipt Date: 20220621
  Transmission Date: 20220720
  Serious: Yes (Other)
  Sender: FDA-Public Use
  Company Number: 2022A187767

PATIENT
  Age: 4184 Week
  Sex: Female
  Weight: 72.6 kg

DRUGS (1)
  1. SYMBICORT [Suspect]
     Active Substance: BUDESONIDE\FORMOTEROL FUMARATE DIHYDRATE
     Indication: Asthma
     Dosage: 80/4.5 MCG 1 PUFF, DAILY
     Route: 055

REACTIONS (11)
  - Deafness [Unknown]
  - Dyspnoea [Unknown]
  - Fatigue [Unknown]
  - Body height decreased [Unknown]
  - Memory impairment [Unknown]
  - Chest pain [Unknown]
  - Dysphonia [Unknown]
  - Throat irritation [Unknown]
  - Product dose omission issue [Not Recovered/Not Resolved]
  - Device use issue [Unknown]
  - Device issue [Unknown]
